FAERS Safety Report 7957592 (Version 3)
Quarter: 2016Q3

REPORT INFORMATION
  Report Type: Report from Study
  Country: FR (occurrence: FR)
  Receive Date: 20110524
  Receipt Date: 20160927
  Transmission Date: 20161109
  Serious: Yes (Other)
  Sender: FDA-Public Use
  Company Number: FR-ROCHE-777314

PATIENT

DRUGS (2)
  1. PLITIDEPSINE [Suspect]
     Active Substance: PLITIDEPSIN
     Indication: NEOPLASM
     Dosage: ESCALATING DOSES: 2.8, 3.8 AND 4.8 MG/SQ M.
     Route: 042
  2. BEVACIZUMAB [Suspect]
     Active Substance: BEVACIZUMAB
     Indication: NEOPLASM
     Dosage: ON DAYS 1 AND 15 EVERY 4 WEEK
     Route: 042

REACTIONS (7)
  - Alanine aminotransferase increased [Unknown]
  - Myalgia [Unknown]
  - Nausea [Unknown]
  - Epistaxis [None]
  - Headache [None]
  - Vomiting [Unknown]
  - Fatigue [Unknown]
